FAERS Safety Report 11512441 (Version 1)
Quarter: 2015Q3

REPORT INFORMATION
  Report Type: Spontaneous
  Country: US (occurrence: US)
  Receive Date: 20150916
  Receipt Date: 20150916
  Transmission Date: 20151125
  Serious: No
  Sender: FDA-Public Use
  Company Number: US-TORRENT-00000978

PATIENT
  Sex: Female

DRUGS (1)
  1. LOSARTAN POTASSIUM (100 MG) + HCTZ (25 MG) [Suspect]
     Active Substance: HYDROCHLOROTHIAZIDE\LOSARTAN POTASSIUM
     Indication: PRODUCT USED FOR UNKNOWN INDICATION
     Dosage: LOSARTAN POTASSIUM 100MG AND HCTZ 25MG
     Dates: start: 20150624

REACTIONS (3)
  - Tongue coated [Unknown]
  - Vision blurred [Unknown]
  - Product substitution issue [Unknown]
